FAERS Safety Report 12949982 (Version 1)
Quarter: 2016Q4

REPORT INFORMATION
  Report Type: Spontaneous
  Country: US (occurrence: US)
  Receive Date: 20161116
  Receipt Date: 20161116
  Transmission Date: 20170207
  Serious: Yes (Hospitalization)
  Sender: FDA-Public Use
  Company Number: None

PATIENT
  Age: 46 Year
  Sex: Female
  Weight: 67.7 kg

DRUGS (1)
  1. ERBITUX [Suspect]
     Active Substance: CETUXIMAB
     Dates: end: 20160726

REACTIONS (4)
  - Alpha haemolytic streptococcal infection [None]
  - Abscess [None]
  - Skin burning sensation [None]
  - Soft tissue infection [None]

NARRATIVE: CASE EVENT DATE: 20160902
